FAERS Safety Report 8043472-6 (Version None)
Quarter: 2012Q1

REPORT INFORMATION
  Report Type: 
  Country: None (occurrence: None)
  Receive Date: 20120112
  Receipt Date: 20120104
  Transmission Date: 20120608
  Serious: Yes (Death, Hospitalization, Other)
  Sender: FDA-Public Use
  Company Number: US-BAXTER-2011BH040332

PATIENT
  Sex: Male

DRUGS (1)
  1. DIANEAL [Suspect]
     Indication: PERITONEAL DIALYSIS
     Route: 033
     Dates: end: 20111230

REACTIONS (6)
  - ISCHAEMIA [None]
  - CORONARY ARTERY DISSECTION [None]
  - AORTIC VALVE INCOMPETENCE [None]
  - POST PROCEDURAL COMPLICATION [None]
  - HAEMATOCHEZIA [None]
  - PNEUMONIA [None]
